FAERS Safety Report 25716008 (Version 1)
Quarter: 2025Q3

REPORT INFORMATION
  Report Type: Spontaneous
  Country: LB (occurrence: None)
  Receive Date: 20250822
  Receipt Date: 20250822
  Transmission Date: 20251020
  Serious: Yes (Other)
  Sender: Alvotech
  Company Number: LB-ALVOTECHPMS-2025-ALVOTECHPMS-004911

PATIENT
  Age: 19 Year
  Sex: Male

DRUGS (1)
  1. ADALIMUMAB [Suspect]
     Active Substance: ADALIMUMAB
     Indication: Hidradenitis
     Dosage: 40MG WEEKLY

REACTIONS (1)
  - Pyoderma gangrenosum [Recovered/Resolved]
